FAERS Safety Report 6346722-7 (Version None)
Quarter: 2009Q3

REPORT INFORMATION
  Report Type: 
  Country: None (occurrence: None)
  Receive Date: 20090904
  Receipt Date: 20090824
  Transmission Date: 20100115
  Serious: Yes (Death, Life-Threatening)
  Sender: FDA-Public Use
  Company Number: CLOF-1000610

PATIENT
  Age: 72 Year
  Sex: Male
  Weight: 60.3 kg

DRUGS (11)
  1. EVOLTRA (CLOFARABINE) SOLUTION FOR INFUSION [Suspect]
     Indication: ACUTE MYELOID LEUKAEMIA
     Dosage: 20 MG/M2, QDX5, INTRAVENOUS ; INTRAVENOUS
     Route: 042
     Dates: start: 20090619, end: 20090623
  2. EVOLTRA (CLOFARABINE) SOLUTION FOR INFUSION [Suspect]
     Indication: ACUTE MYELOID LEUKAEMIA
     Dosage: 20 MG/M2, QDX5, INTRAVENOUS ; INTRAVENOUS
     Route: 042
     Dates: end: 20090804
  3. DAUNORUBICIN (DAUNORUBICI) INTRAVENOUS INFUSION [Suspect]
     Indication: ACUTE MYELOID LEUKAEMIA
     Dosage: 50 MG/M2, INTRAVENOUS ; INTRAVENOUS
     Route: 042
     Dates: start: 20090619, end: 20090623
  4. DAUNORUBICIN (DAUNORUBICI) INTRAVENOUS INFUSION [Suspect]
     Indication: ACUTE MYELOID LEUKAEMIA
     Dosage: 50 MG/M2, INTRAVENOUS ; INTRAVENOUS
     Route: 042
     Dates: end: 20090804
  5. MYLOTARG [Suspect]
     Indication: ACUTE MYELOID LEUKAEMIA
     Dosage: 3 MG/M2, ONCE, INTRAVENOUS
     Route: 036
     Dates: start: 20090619, end: 20090619
  6. PIPERACILLIN SODIUM AND TAZOBACTAM SODIUM [Concomitant]
  7. TRANEXAMIC ACID (TRANEXAMMIC ACID) [Concomitant]
  8. ACYCLOVIR [Concomitant]
  9. ALLOPURINOL [Concomitant]
  10. NYSTATIN [Concomitant]
  11. SLOW-K [Concomitant]

REACTIONS (12)
  - BLOOD SODIUM DECREASED [None]
  - CARDIAC ARREST [None]
  - HAEMATOCRIT DECREASED [None]
  - HAEMOGLOBIN DECREASED [None]
  - HERPES VIRUS INFECTION [None]
  - HYPOKALAEMIA [None]
  - NONSPECIFIC REACTION [None]
  - PANCYTOPENIA [None]
  - PLEURAL EFFUSION [None]
  - RASH [None]
  - RED BLOOD CELL COUNT DECREASED [None]
  - WHITE BLOOD CELL COUNT DECREASED [None]
